FAERS Safety Report 6195777-1 (Version None)
Quarter: 2009Q2

REPORT INFORMATION
  Report Type: 
  Country: None (occurrence: None)
  Receive Date: 20090520
  Receipt Date: 20071017
  Transmission Date: 20091009
  Serious: Yes (Hospitalization, Other)
  Sender: FDA-Public Use
  Company Number: US-ASTRAZENECA-2006UW22655

PATIENT
  Age: 15747 Day
  Sex: Female
  Weight: 137.4 kg

DRUGS (24)
  1. SEROQUEL [Suspect]
     Indication: SCHIZOPHRENIA
     Route: 048
     Dates: start: 19970101, end: 20040101
  2. SEROQUEL [Suspect]
     Dosage: DOSE FLUCTUATED BETWEEN 100 MG-1200 MG
     Route: 048
     Dates: start: 20020211, end: 20040830
  3. SEROQUEL [Suspect]
     Dosage: DOSE FLUCTUATED BETWEEN 200 MG TO 900 MG
     Route: 048
     Dates: start: 20040913
  4. HALDOL [Concomitant]
     Dosage: 5 MG TO 20 MG
     Route: 048
     Dates: start: 19830101
  5. AMANTADINE HCL [Concomitant]
     Dosage: 100 MG TO 200 MG
     Route: 065
  6. ABILIFY [Concomitant]
     Route: 048
  7. TRAZODONE HCL [Concomitant]
     Route: 065
  8. COGENTIN [Concomitant]
     Route: 065
  9. TOPAMAX [Concomitant]
     Dosage: 50 MG TO 100 MG
     Route: 065
  10. TEGRETOL [Concomitant]
     Route: 065
  11. GEODON [Concomitant]
     Dosage: 80 TO 120 MG
     Route: 048
  12. VISTARIL [Concomitant]
     Route: 048
  13. DOCUSATE SODIUM [Concomitant]
     Route: 065
  14. RISPERDAL [Concomitant]
     Route: 065
  15. LASIX [Concomitant]
     Route: 065
  16. ADVAIR HFA [Concomitant]
     Dosage: 250/50 B.I.D
     Route: 065
  17. GLIMEPIRIDE [Concomitant]
     Route: 065
  18. KLOR-CON M [Concomitant]
     Route: 065
  19. COREG [Concomitant]
     Route: 065
  20. AVANDAMET [Concomitant]
     Dosage: 2-500 MG B.I.D
     Route: 065
  21. NORVASC [Concomitant]
     Route: 065
  22. KLONOPIN [Concomitant]
     Dosage: 1 MG TO 3 MG
     Route: 065
  23. DEPAKOTE [Concomitant]
     Route: 048
  24. LEXAPRO [Concomitant]
     Route: 065

REACTIONS (38)
  - ABDOMINAL PAIN [None]
  - ABSCESS ORAL [None]
  - ACUTE TONSILLITIS [None]
  - ALCOHOL ABUSE [None]
  - ANXIETY [None]
  - ARTHRALGIA [None]
  - BACK PAIN [None]
  - BIPOLAR I DISORDER [None]
  - BUNION [None]
  - CARDIAC FLUTTER [None]
  - CHEST DISCOMFORT [None]
  - CHRONIC TONSILLITIS [None]
  - CONSTIPATION [None]
  - DELUSION [None]
  - DELUSIONAL DISORDER, PERSECUTORY TYPE [None]
  - DIABETES MELLITUS [None]
  - DIZZINESS [None]
  - DRUG ABUSE [None]
  - DYSPHAGIA [None]
  - DYSPNOEA [None]
  - ENTHESOPATHY [None]
  - FOOT DEFORMITY [None]
  - HALLUCINATION, AUDITORY [None]
  - HEADACHE [None]
  - INSOMNIA [None]
  - METATARSALGIA [None]
  - NAUSEA [None]
  - NEURITIS [None]
  - PANIC ATTACK [None]
  - PNEUMONIA [None]
  - POLYSUBSTANCE DEPENDENCE [None]
  - RECTAL HAEMORRHAGE [None]
  - SCHIZOPHRENIA [None]
  - SCHIZOPHRENIA, PARANOID TYPE [None]
  - SUBSTANCE ABUSE [None]
  - SUICIDAL IDEATION [None]
  - SUICIDE ATTEMPT [None]
  - UVULITIS [None]
